FAERS Safety Report 21971548 (Version 4)
Quarter: 2023Q2

REPORT INFORMATION
  Report Type: Report from Study
  Country: CN (occurrence: None)
  Receive Date: 20230209
  Receipt Date: 20230628
  Transmission Date: 20230722
  Serious: Yes (Hospitalization, Other)
  Sender: FDA-Public Use
  Company Number: CN-ROCHE-3280483

PATIENT
  Age: 67 Year
  Sex: Male

DRUGS (7)
  1. RITUXIMAB [Suspect]
     Active Substance: RITUXIMAB
     Indication: Mantle cell lymphoma
     Dosage: 375 MG/M2 Q4WK / 375 MG/M2 Q4WK / 375 MG/M2
     Route: 042
     Dates: start: 20230104, end: 20230104
  2. RITUXIMAB [Suspect]
     Active Substance: RITUXIMAB
     Route: 042
     Dates: start: 20230202
  3. BENDAMUSTINE [Suspect]
     Active Substance: BENDAMUSTINE
     Indication: Mantle cell lymphoma
     Dosage: ON DAYS 1 AND 2 OF EACH 28-DAY CYCLE,?THERAPY DATES 02/FEB/2023 / 02/MAR/2023 TO 02/MAR/2023
     Route: 042
     Dates: start: 20230104, end: 20230105
  4. BENDAMUSTINE [Suspect]
     Active Substance: BENDAMUSTINE
     Route: 042
     Dates: start: 20230202, end: 20230203
  5. BENDAMUSTINE [Suspect]
     Active Substance: BENDAMUSTINE
     Dosage: SUBSEQUENT DOSE RECEIVED ON 30/MAR/2023, 31/MAR/2023
     Route: 042
     Dates: start: 20230302, end: 20230303
  6. ACALABRUTINIB [Suspect]
     Active Substance: ACALABRUTINIB
     Indication: Mantle cell lymphoma
     Route: 048
     Dates: start: 20230104, end: 20230302
  7. ACALABRUTINIB [Suspect]
     Active Substance: ACALABRUTINIB
     Route: 048
     Dates: start: 20230202, end: 20230301

REACTIONS (4)
  - Platelet count decreased [Recovered/Resolved]
  - Anaemia [Recovered/Resolved]
  - Ventricular extrasystoles [Not Recovered/Not Resolved]
  - White blood cell count decreased [Not Recovered/Not Resolved]

NARRATIVE: CASE EVENT DATE: 20230105
